FAERS Safety Report 17307946 (Version 1)
Quarter: 2020Q1

REPORT INFORMATION
  Report Type: Spontaneous
  Country: US (occurrence: US)
  Receive Date: 20200107
  Receipt Date: 20200107
  Transmission Date: 20200409
  Serious: No
  Sender: FDA-Public Use
  Company Number: None

PATIENT
  Age: 62 Year
  Sex: Female

DRUGS (2)
  1. COSENTYX [Suspect]
     Active Substance: SECUKINUMAB
     Indication: PSORIASIS
     Dosage: INJECT 300MG (2PEN)S SUBCUTANEOUSLY EVERY WEEK  FOR 5  WEEKS AS DIRECTED
     Route: 058
     Dates: start: 201909
  2. COSENTYX [Suspect]
     Active Substance: SECUKINUMAB
     Indication: PSORIATIC ARTHROPATHY
     Dosage: INJECT 300MG (2PEN)S SUBCUTANEOUSLY EVERY WEEK  FOR 5  WEEKS AS DIRECTED
     Route: 058
     Dates: start: 201909

REACTIONS (3)
  - Catheterisation cardiac [None]
  - Headache [None]
  - Hypertension [None]
